FAERS Safety Report 8559395 (Version 4)
Quarter: 2013Q1

REPORT INFORMATION
  Report Type: Spontaneous
  Country: US (occurrence: US)
  Receive Date: 20120512
  Receipt Date: 20130212
  Transmission Date: 20140127
  Serious: Yes (Hospitalization, Other)
  Sender: FDA-Public Use
  Company Number: US-ELI_LILLY_AND_COMPANY-US201111008465

PATIENT
  Age: 61 None
  Sex: Female

DRUGS (33)
  1. FORTEO [Suspect]
     Indication: OSTEOPOROSIS
     Dosage: 20 UG, QD
     Route: 065
     Dates: start: 2003
  2. FORTEO [Suspect]
     Dosage: 20 UG, QD
     Route: 065
  3. FORTEO [Suspect]
     Dosage: 20 UG, QD
  4. FORTEO [Suspect]
     Dosage: 20 UG, QD
  5. FORTEO [Suspect]
     Dosage: 20 UG, QD
  6. FORTEO [Suspect]
     Dosage: 20 UG, QD
     Dates: start: 201109
  7. FORTEO [Suspect]
     Dosage: UNK
  8. HYDROCODONE [Concomitant]
     Indication: BACK PAIN
  9. TRAMADOL [Concomitant]
     Dosage: UNK
  10. CORTISONE [Concomitant]
     Dosage: UNK
  11. POTASSIUM CHLORIDE [Concomitant]
     Dosage: 20 MEQ, QD
  12. SULFAZIN                           /02001601/ [Concomitant]
     Dosage: 500 MG, BID
  13. NAPACIN [Concomitant]
     Dosage: 500 MG, BID
  14. ADVAIR [Concomitant]
     Dosage: 550 DF, BID
  15. ABREVA [Concomitant]
     Dosage: UNK, QD
  16. GABAPENTIN [Concomitant]
     Dosage: 1600 MG, BID
  17. ACLOVIR [Concomitant]
     Dosage: 400 MG, BID
  18. TRIAMTERENE AND HYDROCHLOROTHIAZIDE [Concomitant]
     Dosage: 75/50MG QD
  19. PRILOSEC [Concomitant]
     Dosage: UNK, BID
  20. AMITIZA [Concomitant]
     Dosage: 20MCG TWICE
  21. PILOCARPINE [Concomitant]
     Dosage: 5 MG, TID
  22. LEVOTHROID [Concomitant]
     Dosage: 50 MG, QD
  23. BACLOFEN [Concomitant]
     Dosage: 10 MG, BID
  24. METHOTREXATE [Concomitant]
     Dosage: 8 TABSWEEKLY (1/W)
  25. CYMBALTA [Concomitant]
     Dosage: 90 MG, QD
  26. LEVOCETIRIZINE [Concomitant]
     Dosage: 5 MG, QD
  27. ACIDOPHILUS [Concomitant]
  28. ABILIFY [Concomitant]
     Dosage: 15 MG, QD
  29. FOLIC ACID [Concomitant]
  30. HYDROCODONE [Concomitant]
     Dosage: 10 OR 25MG BID PRN
  31. LORAZEPAM [Concomitant]
     Dosage: NO MORE THAN 3 DAILY PRN
  32. AMBIEN [Concomitant]
     Dosage: 10 MG, QD PRN
  33. RECLAST [Concomitant]
     Dosage: UNK

REACTIONS (14)
  - Skin cancer [Unknown]
  - Eye haemorrhage [Unknown]
  - Visual impairment [Unknown]
  - Hip fracture [Unknown]
  - Femur fracture [Unknown]
  - Surgical failure [Unknown]
  - Mouth ulceration [Not Recovered/Not Resolved]
  - Gait disturbance [Unknown]
  - Constipation [Recovering/Resolving]
  - Pneumonia [Not Recovered/Not Resolved]
  - Stomatitis [Unknown]
  - Drug ineffective [Not Recovered/Not Resolved]
  - Frustration [Unknown]
  - Muscle spasms [Unknown]
